FAERS Safety Report 6440923-5 (Version None)
Quarter: 2009Q4

REPORT INFORMATION
  Report Type: 
  Country: None (occurrence: None)
  Receive Date: 20091113
  Receipt Date: 20091113
  Transmission Date: 20100525
  Serious: Yes (Life-Threatening)
  Sender: FDA-Public Use
  Company Number: None

PATIENT
  Age: 41 Year
  Sex: Female
  Weight: 122.4712 kg

DRUGS (1)
  1. LYRICA [Suspect]
     Indication: BACK PAIN
     Dosage: 1 BID PO
     Route: 048
     Dates: start: 20091001, end: 20091013

REACTIONS (3)
  - INTENTIONAL OVERDOSE [None]
  - MEDICATION ERROR [None]
  - SUICIDE ATTEMPT [None]
